FAERS Safety Report 14431341 (Version 1)
Quarter: 2018Q1

REPORT INFORMATION
  Report Type: Spontaneous
  Country: US (occurrence: US)
  Receive Date: 20180124
  Receipt Date: 20180124
  Transmission Date: 20180509
  Serious: No
  Sender: FDA-Public Use
  Company Number: US-PFIZER INC-2018030488

PATIENT
  Age: 65 Year
  Sex: Female

DRUGS (2)
  1. GENOTROPIN [Suspect]
     Active Substance: SOMATROPIN
     Indication: THYROID DISORDER
     Dosage: 0.04 MG ONCE DAILY AT NIGHT
     Route: 058
  2. SEROTONIN [Concomitant]
     Active Substance: SEROTONIN
     Indication: BLOOD PRESSURE ABNORMAL
     Dosage: 320 MG, DAILY

REACTIONS (4)
  - Product use in unapproved indication [Unknown]
  - Device issue [Unknown]
  - Drug dose omission [Unknown]
  - Fatigue [Unknown]

NARRATIVE: CASE EVENT DATE: 20180118
